FAERS Safety Report 9094579 (Version 1)
Quarter: 2013Q1

REPORT INFORMATION
  Report Type: Spontaneous
  Country: IT (occurrence: IT)
  Receive Date: 20130219
  Receipt Date: 20130219
  Transmission Date: 20140127
  Serious: Yes (Hospitalization, Other)
  Sender: FDA-Public Use
  Company Number: IT-MYLANLABS-2013S1002838

PATIENT
  Age: 63 Year
  Sex: Female

DRUGS (3)
  1. PACLITAXEL [Suspect]
     Indication: VULVAL NEOPLASM
     Dosage: CYCLIC
     Route: 042
     Dates: start: 20130109, end: 20130204
  2. CISPLATINO [Concomitant]
     Indication: VULVAL NEOPLASM
     Dosage: 0.5 MG/ML CONCENTRATE PER SOLUTION PER INFUSION
     Dates: start: 20130109, end: 20130204
  3. HOLOXAN [Concomitant]
     Indication: VULVAL NEOPLASM
     Dosage: 1 G POWDER FOR INJECTION SOLUTION
     Dates: start: 20130109, end: 20130204

REACTIONS (4)
  - Dyspnoea [Recovered/Resolved]
  - Flushing [Recovered/Resolved]
  - Oral discomfort [Recovered/Resolved]
  - Paraesthesia [Recovered/Resolved]
